FAERS Safety Report 21268918 (Version 2)
Quarter: 2022Q4

REPORT INFORMATION
  Report Type: Spontaneous
  Country: US (occurrence: US)
  Receive Date: 20220830
  Receipt Date: 20221001
  Transmission Date: 20230113
  Serious: Yes (Hospitalization, Other)
  Sender: FDA-Public Use
  Company Number: US-TEVA-2022-US-2067692

PATIENT
  Age: 79 Year
  Sex: Female

DRUGS (1)
  1. AJOVY [Suspect]
     Active Substance: FREMANEZUMAB-VFRM
     Indication: Migraine
     Dosage: 225 MG / 1.5 ML
     Route: 065

REACTIONS (8)
  - Illness [Unknown]
  - Loss of consciousness [Unknown]
  - Fall [Unknown]
  - Cerebrovascular accident [Unknown]
  - Drug ineffective [Unknown]
  - Product closure removal difficult [Unknown]
  - Drug dose omission by device [Unknown]
  - Product storage error [Recovered/Resolved]

NARRATIVE: CASE EVENT DATE: 19980101
